FAERS Safety Report 8490126-8 (Version None)
Quarter: 2012Q2

REPORT INFORMATION
  Report Type: 
  Country: None (occurrence: None)
  Receive Date: 20120626
  Receipt Date: 20120621
  Transmission Date: 20120825
  Serious: Yes (Other)
  Sender: FDA-Public Use
  Company Number: 2010SP003304

PATIENT
  Age: 27 Year
  Sex: Female
  Weight: 90.7194 kg

DRUGS (6)
  1. NUVARING [Suspect]
     Indication: CONTRACEPTION
     Dates: start: 20110608
  2. NUVARING [Suspect]
     Indication: MENSTRUAL DISORDER
     Dates: start: 20110608
  3. NUVARING [Suspect]
     Indication: MENORRHAGIA
     Dates: start: 20110608
  4. NUVARING [Suspect]
     Indication: CONTRACEPTION
     Dates: start: 20030501, end: 20080101
  5. NUVARING [Suspect]
     Indication: MENSTRUAL DISORDER
     Dates: start: 20030501, end: 20080101
  6. NUVARING [Suspect]
     Indication: MENORRHAGIA
     Dates: start: 20030501, end: 20080101

REACTIONS (1)
  - CEREBROVASCULAR ACCIDENT [None]
